FAERS Safety Report 24800473 (Version 1)
Quarter: 2025Q1

REPORT INFORMATION
  Report Type: Spontaneous
  Country: US (occurrence: US)
  Receive Date: 20250102
  Receipt Date: 20250102
  Transmission Date: 20250409
  Serious: No
  Sender: ABBVIE
  Company Number: US-ABBVIE-6069490

PATIENT
  Age: 64 Year
  Sex: Female

DRUGS (1)
  1. FLUOROMETHOLONE [Suspect]
     Active Substance: FLUOROMETHOLONE
     Indication: Product used for unknown indication
     Route: 047
     Dates: end: 202412

REACTIONS (4)
  - Condition aggravated [Unknown]
  - Discomfort [Unknown]
  - Product container issue [Unknown]
  - Pain [Unknown]

NARRATIVE: CASE EVENT DATE: 20241201
